FAERS Safety Report 10482373 (Version 2)
Quarter: 2014Q4

REPORT INFORMATION
  Report Type: Spontaneous
  Country: US (occurrence: US)
  Receive Date: 20140929
  Receipt Date: 20141028
  Transmission Date: 20150528
  Serious: Yes (Hospitalization, Other)
  Sender: FDA-Public Use
  Company Number: US-BAYER-2014-143376

PATIENT
  Age: 25 Year
  Sex: Female
  Weight: 85.71 kg

DRUGS (1)
  1. MIRENA [Suspect]
     Active Substance: LEVONORGESTREL
     Indication: CONTRACEPTION
     Dosage: 20 MCG/24HR, CONT
     Route: 015
     Dates: start: 20100827, end: 20121207

REACTIONS (8)
  - Pain [None]
  - Dysuria [None]
  - Scar [None]
  - Device breakage [None]
  - Injury [None]
  - Pelvic pain [None]
  - Uterine perforation [None]
  - Dysmenorrhoea [None]

NARRATIVE: CASE EVENT DATE: 20121130
